FAERS Safety Report 4538382-2 (Version None)
Quarter: 2004Q4

REPORT INFORMATION
  Report Type: 
  Country: None (occurrence: None)
  Receive Date: 20041221
  Receipt Date: 20041209
  Transmission Date: 20050328
  Serious: Yes (Other)
  Sender: FDA-Public Use
  Company Number: 2004108109

PATIENT
  Sex: Male

DRUGS (1)
  1. GLIPIZIDE [Suspect]
     Indication: ILL-DEFINED DISORDER

REACTIONS (1)
  - CEREBROVASCULAR ACCIDENT [None]
